FAERS Safety Report 25120279 (Version 1)
Quarter: 2025Q1

REPORT INFORMATION
  Report Type: Spontaneous
  Country: US (occurrence: None)
  Receive Date: 20250325
  Receipt Date: 20250325
  Transmission Date: 20250409
  Serious: Yes (Hospitalization)
  Sender: FDA-CTU
  Company Number: None

PATIENT
  Age: 62 Year
  Sex: Male
  Weight: 89.8 kg

DRUGS (1)
  1. VIVITROL [Suspect]
     Active Substance: NALTREXONE
     Indication: Alcohol use disorder
     Route: 030
     Dates: start: 20250311, end: 20250311

REACTIONS (8)
  - Arthralgia [None]
  - Pyrexia [None]
  - Acute kidney injury [None]
  - Lactic acidosis [None]
  - Injection site reaction [None]
  - Wound [None]
  - Cellulitis [None]
  - Myositis [None]

NARRATIVE: CASE EVENT DATE: 20250321
